FAERS Safety Report 8255590-8 (Version None)
Quarter: 2012Q2

REPORT INFORMATION
  Report Type: 
  Country: None (occurrence: None)
  Receive Date: 20120403
  Receipt Date: 20120322
  Transmission Date: 20120825
  Serious: Yes (Death, Hospitalization, Other)
  Sender: FDA-Public Use
  Company Number: MY-SANOFI-AVENTIS-2012SA019927

PATIENT
  Age: 74 Year
  Sex: Male
  Weight: 88.8 kg

DRUGS (9)
  1. CIPROFLOXACIN [Concomitant]
     Route: 065
  2. CABAZITAXEL [Suspect]
     Route: 042
     Dates: start: 20120315, end: 20120315
  3. CABAZITAXEL [Suspect]
     Indication: PROSTATE CANCER METASTATIC
     Route: 042
     Dates: start: 20120223, end: 20120223
  4. RANITIDINE [Concomitant]
     Route: 065
  5. LOMOTIL [Concomitant]
     Route: 065
  6. PREDNISOLONE [Suspect]
     Indication: PROSTATE CANCER METASTATIC
     Route: 048
  7. DEXAMETHASONE [Concomitant]
     Route: 065
  8. CHLORPHENIRAMINE MALEATE [Concomitant]
     Route: 065
  9. MAXOLON [Concomitant]
     Route: 065

REACTIONS (1)
  - GASTRIC ULCER HAEMORRHAGE [None]
